FAERS Safety Report 5907000-0 (Version None)
Quarter: 2008Q4

REPORT INFORMATION
  Report Type: 
  Country: None (occurrence: None)
  Receive Date: 20081003
  Receipt Date: 20080919
  Transmission Date: 20090506
  Serious: Yes (Life-Threatening, Hospitalization)
  Sender: FDA-Public Use
  Company Number: JP-PURDUE-MAG_2008_0000718

PATIENT
  Age: 83 Year
  Sex: Female
  Weight: 57 kg

DRUGS (11)
  1. THEOPHYLLINE [Suspect]
     Indication: ASTHMA
     Dosage: 200 MG, DAILY
     Route: 048
     Dates: end: 20080815
  2. ASPIRIN [Suspect]
     Indication: CEREBRAL INFARCTION
     Dosage: 100 MG, DAILY
     Route: 048
     Dates: start: 20031207, end: 20080815
  3. ENALAPRIL MALEATE [Suspect]
     Indication: HYPERTENSION
     Dosage: 5 MG, DAILY
     Route: 048
     Dates: start: 20080416, end: 20080815
  4. LORATADINE [Suspect]
     Indication: RHINITIS ALLERGIC
     Dosage: 10 MG, DAILY
     Route: 048
     Dates: start: 20070801, end: 20080815
  5. MONTELUKAST SODIUM [Suspect]
     Indication: DRUG USE FOR UNKNOWN INDICATION
     Dosage: 10 MG, DAILY
     Route: 048
     Dates: start: 20070801, end: 20080815
  6. CROMOLYN SODIUM [Suspect]
     Indication: DRUG USE FOR UNKNOWN INDICATION
     Route: 045
     Dates: start: 20070801
  7. BUDESONIDE [Suspect]
     Indication: ASTHMA
     Dosage: 200 MCG, DAILY
     Route: 055
     Dates: start: 20070801
  8. AMLODIPINE [Suspect]
     Indication: HYPERTENSION
     Dosage: 5 MG, DAILY
     Route: 048
     Dates: start: 20030101, end: 20080415
  9. KETOPROFEN [Suspect]
     Indication: ARTHRALGIA
     Dosage: UNK, DAILY
     Route: 065
     Dates: start: 19940101, end: 20080815
  10. URSODIOL [Suspect]
     Indication: CHOLELITHIASIS
     Dosage: 200 MG, DAILY
     Route: 048
     Dates: start: 19890101, end: 20080815
  11. CARBOCISTEINE [Suspect]
     Indication: DRUG USE FOR UNKNOWN INDICATION
     Dosage: 1500 MG, DAILY
     Route: 048

REACTIONS (2)
  - LEUKOCYTOCLASTIC VASCULITIS [None]
  - TUBULOINTERSTITIAL NEPHRITIS [None]
